FAERS Safety Report 9655532 (Version 2)
Quarter: 2013Q4

REPORT INFORMATION
  Report Type: Spontaneous
  Country: LV (occurrence: LV)
  Receive Date: 20131029
  Receipt Date: 20131120
  Transmission Date: 20140711
  Serious: Yes (Death, Other)
  Sender: FDA-Public Use
  Company Number: LV-ELI_LILLY_AND_COMPANY-LV201310007787

PATIENT
  Age: 70 Year
  Sex: Female

DRUGS (4)
  1. HUMALOG 50% LISPRO, 50% NPL [Suspect]
     Indication: TYPE 2 DIABETES MELLITUS
     Dosage: 14 IU, BID
     Route: 065
     Dates: start: 201307
  2. HUMALOG 50% LISPRO, 50% NPL [Suspect]
     Dosage: UNK
     Route: 065
     Dates: start: 20130805, end: 20130818
  3. NOLIPREL                           /01421201/ [Concomitant]
     Indication: CARDIOVASCULAR DISORDER
  4. CADUET [Concomitant]
     Indication: CARDIOVASCULAR DISORDER

REACTIONS (1)
  - Ischaemic stroke [Fatal]
